FAERS Safety Report 9173212 (Version 1)
Quarter: 2013Q1

REPORT INFORMATION
  Report Type: Spontaneous
  Country: US (occurrence: US)
  Receive Date: 20130320
  Receipt Date: 20130320
  Transmission Date: 20140127
  Serious: Yes (Death, Life-Threatening, Hospitalization, Disabling)
  Sender: FDA-Public Use
  Company Number: US-JNJFOC-20040703804

PATIENT
  Age: 8 None
  Sex: Female
  Weight: 24 kg

DRUGS (3)
  1. CHILDREN^S MOTRIN BERRY ORAL [Suspect]
     Indication: OROPHARYNGEAL PAIN
     Dosage: Q4-6H, ORAL
     Route: 048
     Dates: start: 20020406, end: 20020409
  2. CHILDREN^S MOTRIN BERRY ORAL [Suspect]
     Indication: PYREXIA
     Dosage: Q4-6H, ORAL
     Route: 048
     Dates: start: 20020406, end: 20020409
  3. TAMIFLU [Concomitant]
     Dosage: ONCE
     Route: 048
     Dates: start: 20020406, end: 20020406

REACTIONS (18)
  - Death [Fatal]
  - Stevens-Johnson syndrome [Not Recovered/Not Resolved]
  - Toxic epidermal necrolysis [Not Recovered/Not Resolved]
  - Depression [Not Recovered/Not Resolved]
  - Anxiety [Not Recovered/Not Resolved]
  - Acute respiratory distress syndrome [None]
  - Infection [None]
  - Pseudomonas infection [None]
  - Candida infection [None]
  - Staphylococcal infection [None]
  - Clostridial infection [None]
  - Mycoplasma infection [None]
  - Palatal disorder [None]
  - Jaundice cholestatic [None]
  - Corneal disorder [None]
  - Pneumothorax [None]
  - Hypotension [None]
  - Respiratory arrest [None]
